FAERS Safety Report 25196893 (Version 2)
Quarter: 2025Q2

REPORT INFORMATION
  Report Type: Spontaneous
  Country: US (occurrence: US)
  Receive Date: 20250415
  Receipt Date: 20250502
  Transmission Date: 20250716
  Serious: Yes (Other)
  Sender: BAXTER
  Company Number: US-BAXTER-2025BAX013977

PATIENT
  Age: 0 Year
  Sex: Male

DRUGS (9)
  1. DEXTROSE [Suspect]
     Active Substance: DEXTROSE MONOHYDRATE
     Route: 065
  2. DEXTROSE [Suspect]
     Active Substance: DEXTROSE MONOHYDRATE
     Route: 042
     Dates: start: 20250405, end: 20250406
  3. STERILE WATER FOR INJECTION [Suspect]
     Active Substance: WATER
     Route: 065
  4. POTASSIUM CHLORIDE [Suspect]
     Active Substance: POTASSIUM CHLORIDE
     Route: 065
  5. SODIUM CHLORIDE [Suspect]
     Active Substance: SODIUM CHLORIDE
     Route: 065
  6. MAGNESIUM SULFATE [Suspect]
     Active Substance: MAGNESIUM SULFATE
     Route: 065
  7. LEVOCARNITINE [Suspect]
     Active Substance: LEVOCARNITINE
     Route: 065
  8. SODIUM PHOSPHATE [Suspect]
     Active Substance: SODIUM PHOSPHATE
     Route: 065
  9. ZINC CHLORIDE [Suspect]
     Active Substance: ZINC CHLORIDE
     Route: 065

REACTIONS (2)
  - Blood glucose decreased [Unknown]
  - Hyperglycaemia [Unknown]

NARRATIVE: CASE EVENT DATE: 20250405
